FAERS Safety Report 4291161-6 (Version None)
Quarter: 2004Q1

REPORT INFORMATION
  Report Type: 
  Country: None (occurrence: None)
  Receive Date: 20040209
  Receipt Date: 20040122
  Transmission Date: 20041129
  Serious: Yes (Hospitalization)
  Sender: FDA-Public Use
  Company Number: 187244

PATIENT
  Age: 57 Year
  Sex: Female
  Weight: 55.3388 kg

DRUGS (6)
  1. AVONEX [Suspect]
     Indication: MULTIPLE SCLEROSIS
     Dosage: 30 MCG QW IM
     Route: 030
     Dates: start: 19980101, end: 20031113
  2. AVONEX [Suspect]
     Indication: MULTIPLE SCLEROSIS
     Dosage: 30 MCG QW IM
     Route: 030
     Dates: start: 20031120
  3. LEVOTHYROXINE SODIUM [Concomitant]
  4. ACTONEL [Concomitant]
  5. FOSAMAX [Concomitant]
  6. CALCIUM [Concomitant]

REACTIONS (6)
  - BACK PAIN [None]
  - HYPERTENSION [None]
  - INTERVERTEBRAL DISC DISORDER [None]
  - RED BLOOD CELL SEDIMENTATION RATE INCREASED [None]
  - RENAL DISORDER [None]
  - RENAL FUNCTION TEST ABNORMAL [None]
